FAERS Safety Report 6395209-4 (Version None)
Quarter: 2009Q4

REPORT INFORMATION
  Report Type: 
  Country: None (occurrence: None)
  Receive Date: 20091009
  Receipt Date: 20090929
  Transmission Date: 20100525
  Serious: Yes (Hospitalization)
  Sender: FDA-Public Use
  Company Number: DE-JNJFOC-20080602147

PATIENT
  Age: 45 Year
  Sex: Male

DRUGS (5)
  1. PALIPERIDONE [Suspect]
     Route: 048
  2. PALIPERIDONE [Suspect]
     Route: 048
  3. PALIPERIDONE [Suspect]
     Indication: SCHIZOPHRENIA
     Route: 048
  4. ZOPICLON [Concomitant]
     Indication: INSOMNIA
     Route: 048
  5. LORAZEPAM [Concomitant]
     Indication: AGITATION
     Route: 048

REACTIONS (3)
  - AKATHISIA [None]
  - DEPRESSION [None]
  - EXTRAPYRAMIDAL DISORDER [None]
